FAERS Safety Report 4620960-3 (Version None)
Quarter: 2005Q1

REPORT INFORMATION
  Report Type: 
  Country: None (occurrence: None)
  Receive Date: 20050325
  Receipt Date: 20050317
  Transmission Date: 20050727
  Serious: Yes (Other)
  Sender: FDA-Public Use
  Company Number: ITWYE510217MAR05

PATIENT
  Age: 33 Year
  Sex: Male

DRUGS (3)
  1. GEMTUZUMAB OZOGAMICIN (GEMTUZUMAB OZOGAMICIN, INJECTION) LOT NO.: 2002 [Suspect]
     Indication: ACUTE PROMYELOCYTIC LEUKAEMIA
     Dosage: 6MG/M2 TWICE A MONTH INTRAVENOUS
     Route: 042
     Dates: start: 20031124, end: 20031124
  2. LEVOFLOXACIN [Concomitant]
  3. AMPHOTERICIN B [Concomitant]

REACTIONS (2)
  - LEUKOPENIA [None]
  - NEUTROPENIA [None]
